FAERS Safety Report 8052463-0 (Version None)
Quarter: 2012Q1

REPORT INFORMATION
  Report Type: 
  Country: None (occurrence: None)
  Receive Date: 20120118
  Receipt Date: 20120111
  Transmission Date: 20120608
  Serious: Yes (Hospitalization)
  Sender: FDA-Public Use
  Company Number: GB-PFIZER INC-2011293229

PATIENT
  Age: 47 Year
  Sex: Male

DRUGS (4)
  1. SUNITINIB MALATE [Suspect]
     Indication: MALIGNANT MELANOMA
     Dosage: 50 MG, UNK
     Route: 048
     Dates: start: 20111018
  2. RANITIDINE [Concomitant]
     Indication: DYSPEPSIA
     Dosage: 300 MG, 1X/DAY
     Route: 048
  3. DICLOFENAC [Concomitant]
     Indication: PAIN
     Dosage: 50 MG, 3X/DAY AND AS NEEDED
     Route: 048
  4. PARACETAMOL [Concomitant]
     Indication: PAIN
     Dosage: 500 MG, 4X/DAY
     Route: 048

REACTIONS (2)
  - VIRAL UPPER RESPIRATORY TRACT INFECTION [None]
  - PYREXIA [None]
